FAERS Safety Report 9763606 (Version 2)
Quarter: 2014Q1

REPORT INFORMATION
  Report Type: Spontaneous
  Country: US (occurrence: US)
  Receive Date: 20131216
  Receipt Date: 20140303
  Transmission Date: 20141002
  Serious: No
  Sender: FDA-Public Use
  Company Number: US-BIOGENIDEC-2013BI104893

PATIENT
  Age: 54 Year
  Sex: Female

DRUGS (10)
  1. TECFIDERA [Suspect]
     Indication: MULTIPLE SCLEROSIS
     Route: 048
     Dates: start: 20131016
  2. TECFIDERA [Suspect]
     Indication: MULTIPLE SCLEROSIS
     Route: 048
     Dates: start: 20131022
  3. TECFIDERA [Suspect]
     Indication: MULTIPLE SCLEROSIS
     Route: 048
  4. XANAX [Concomitant]
  5. ZOLOFT [Concomitant]
  6. PREDNISONE [Concomitant]
  7. TRAMADOL HCL [Concomitant]
  8. CEFDINIR [Concomitant]
  9. LEVALBUTEROL [Concomitant]
  10. CVS VITAMIN D3 [Concomitant]

REACTIONS (7)
  - Skin warm [Recovered/Resolved]
  - Asthma [Recovered/Resolved]
  - General symptom [Recovered/Resolved]
  - Bronchitis [Recovered/Resolved]
  - Flushing [Recovered/Resolved]
  - Erythema [Recovered/Resolved]
  - Pruritus [Recovered/Resolved]
